FAERS Safety Report 9718631 (Version 1)
Quarter: 2013Q4

REPORT INFORMATION
  Report Type: Spontaneous
  Country: US (occurrence: US)
  Receive Date: 20131125
  Receipt Date: 20131125
  Transmission Date: 20140711
  Serious: No
  Sender: FDA-Public Use
  Company Number: US-VIVUS-2013V1000004

PATIENT
  Age: 53 Year
  Sex: Female

DRUGS (2)
  1. QSYMIA 7.5MG/46MG [Suspect]
     Indication: WEIGHT DECREASED
     Route: 048
     Dates: start: 201212
  2. QSYMIA 3.75MG/23MG [Suspect]
     Indication: WEIGHT DECREASED
     Route: 048
     Dates: start: 201211, end: 201211

REACTIONS (4)
  - Hot flush [Unknown]
  - Crying [Unknown]
  - Paraesthesia [Unknown]
  - Dry mouth [Unknown]
